FAERS Safety Report 8127451-6 (Version None)
Quarter: 2011Q4

REPORT INFORMATION
  Report Type: 
  Country: None (occurrence: None)
  Receive Date: 20111227
  Receipt Date: 20111107
  Transmission Date: 20120403
  Serious: No
  Sender: FDA-Public Use
  Company Number: PHEH2011US08043

PATIENT
  Age: 38 Year
  Sex: Female

DRUGS (5)
  1. HYDROCHLOROTHIAZIDE (HYDROCHLOROTHIAZIDE) TABLET [Concomitant]
  2. GABAPENTIN (GABAPENTIN) CAPSULE [Concomitant]
  3. LORTAB [Concomitant]
  4. AMBIEN [Concomitant]
  5. GILENYA [Suspect]

REACTIONS (4)
  - VAGINAL HAEMORRHAGE [None]
  - MUSCULOSKELETAL PAIN [None]
  - MULTIPLE SCLEROSIS RELAPSE [None]
  - BACK PAIN [None]
